FAERS Safety Report 5751561-1 (Version None)
Quarter: 2008Q2

REPORT INFORMATION
  Report Type: 
  Country: None (occurrence: None)
  Receive Date: 20080528
  Receipt Date: 20080519
  Transmission Date: 20081010
  Serious: Yes (Other)
  Sender: FDA-Public Use
  Company Number: PHHY2008BE08233

PATIENT
  Sex: Female

DRUGS (5)
  1. AREDIA [Suspect]
     Indication: OSTEOMALACIA
  2. MS CONTIN [Concomitant]
  3. CALCIUM CARBONATE [Concomitant]
  4. BEFACT [Concomitant]
  5. STRONTIUM RANELATE [Concomitant]

REACTIONS (7)
  - INFLAMMATION [None]
  - NAIL DISCOLOURATION [None]
  - NAIL DISCOMFORT [None]
  - NAIL DISORDER [None]
  - OSTEONECROSIS [None]
  - PAIN IN EXTREMITY [None]
  - SWELLING [None]
